FAERS Safety Report 9794391 (Version 2)
Quarter: 2014Q1

REPORT INFORMATION
  Report Type: Spontaneous
  Country: JP (occurrence: JP)
  Receive Date: 20140102
  Receipt Date: 20140102
  Transmission Date: 20141002
  Serious: Yes (Hospitalization)
  Sender: FDA-Public Use
  Company Number: JP-ELI_LILLY_AND_COMPANY-JP201312000620

PATIENT
  Age: 82 Year
  Sex: Female

DRUGS (3)
  1. HUMULIN REGULAR [Suspect]
     Indication: PRODUCT USED FOR UNKNOWN INDICATION
     Dosage: 8 IU, TID
     Route: 058
  2. LANTUS [Concomitant]
  3. EQUA [Concomitant]
     Route: 048

REACTIONS (3)
  - Ventricular fibrillation [Unknown]
  - Diabetes mellitus inadequate control [Unknown]
  - Generalised oedema [Unknown]
